FAERS Safety Report 9759148 (Version 1)
Quarter: 2013Q4

REPORT INFORMATION
  Report Type: Spontaneous
  Country: JP (occurrence: JP)
  Receive Date: 20131216
  Receipt Date: 20131216
  Transmission Date: 20140711
  Serious: Yes (Other)
  Sender: FDA-Public Use
  Company Number: JP-ASTELLAS-2013JP013807

PATIENT
  Age: 42 Year
  Sex: Male

DRUGS (3)
  1. PROGRAF [Suspect]
     Indication: MYASTHENIA GRAVIS
     Dosage: 3 MG, UNKNOWN/D
     Route: 065
  2. CORTICOSTEROID NOS [Concomitant]
     Indication: MYASTHENIA GRAVIS
     Route: 048
  3. CORTICOSTEROID NOS [Concomitant]
     Route: 048

REACTIONS (2)
  - Drug ineffective [Unknown]
  - Myasthenia gravis [Unknown]
